FAERS Safety Report 18870761 (Version 1)
Quarter: 2021Q1

REPORT INFORMATION
  Report Type: Spontaneous
  Country: IN (occurrence: IN)
  Receive Date: 20210210
  Receipt Date: 20210210
  Transmission Date: 20210420
  Serious: Yes (Other)
  Sender: FDA-Public Use
  Company Number: IN-CADILA HEALTHCARE LIMITED-IN-ZYDUS-061686

PATIENT

DRUGS (5)
  1. TRAMADOL. [Suspect]
     Active Substance: TRAMADOL
     Dosage: 400 MILLIGRAM
     Route: 042
  2. TRAMADOL. [Suspect]
     Active Substance: TRAMADOL
     Indication: ABDOMINAL PAIN UPPER
     Dosage: 2 MILLILITER (50 MG/ML)
     Route: 042
  3. TRAMADOL. [Suspect]
     Active Substance: TRAMADOL
     Dosage: 100 MILLIGRAM
     Route: 042
  4. TRAMADOL. [Suspect]
     Active Substance: TRAMADOL
     Dosage: 2100 MILLIGRAM, QD
     Route: 042
  5. TRAMADOL. [Suspect]
     Active Substance: TRAMADOL
     Dosage: 200 MILLIGRAM (REDUCED)
     Route: 065

REACTIONS (8)
  - Intentional product misuse [Unknown]
  - Behaviour disorder [Unknown]
  - Drug dependence [Unknown]
  - Mental disorder [Unknown]
  - Confusional state [Unknown]
  - Tonic clonic movements [Unknown]
  - Withdrawal syndrome [Unknown]
  - Overdose [Unknown]
